FAERS Safety Report 18232204 (Version 1)
Quarter: 2020Q3

REPORT INFORMATION
  Report Type: Spontaneous
  Country: CA (occurrence: CA)
  Receive Date: 20200904
  Receipt Date: 20200904
  Transmission Date: 20201103
  Serious: Yes (Hospitalization)
  Sender: FDA-Public Use
  Company Number: CA-TEVA-2020-CA-1822353

PATIENT
  Age: 69 Year
  Sex: Male
  Weight: 80 kg

DRUGS (14)
  1. DENOSUMAB [Concomitant]
     Active Substance: DENOSUMAB
  2. ROSUVASTATIN. [Concomitant]
     Active Substance: ROSUVASTATIN
  3. BISACODYL. [Concomitant]
     Active Substance: BISACODYL
  4. DOCETAXEL. [Suspect]
     Active Substance: DOCETAXEL
     Indication: HORMONE-REFRACTORY PROSTATE CANCER
  5. METFORMIN [Concomitant]
     Active Substance: METFORMIN HYDROCHLORIDE
  6. PEG?3350 AND ELECTROLYTES [Concomitant]
     Active Substance: POLYETHYLENE GLYCOL 3350\POTASSIUM CHLORIDE\SODIUM BICARBONATE\SODIUM CHLORIDE\SODIUM SULFATE\SODIUM SULFATE ANHYDROUS
  7. DOCETAXEL. [Suspect]
     Active Substance: DOCETAXEL
     Indication: PROSTATE CANCER METASTATIC
     Dosage: 5.4762 MILLIGRAM DAILY;
     Route: 042
  8. DEXAMETHASONE. [Concomitant]
     Active Substance: DEXAMETHASONE
  9. HYDROMORPHONE [Concomitant]
     Active Substance: HYDROMORPHONE
  10. PROCHLORPERAZINE. [Concomitant]
     Active Substance: PROCHLORPERAZINE
  11. RIVAROXABAN (BAY59? 7939) VS.ASA [Concomitant]
  12. PREGABALIN. [Concomitant]
     Active Substance: PREGABALIN
  13. TAMSULOSIN [Concomitant]
     Active Substance: TAMSULOSIN
  14. ACETAMINOPHEN. [Concomitant]
     Active Substance: ACETAMINOPHEN

REACTIONS (7)
  - Tooth infection [Unknown]
  - Tachycardia [Unknown]
  - Face oedema [Unknown]
  - Febrile neutropenia [Unknown]
  - Toothache [Unknown]
  - Blood lactic acid increased [Unknown]
  - Erythema [Unknown]
